FAERS Safety Report 6831193-4 (Version None)
Quarter: 2010Q3

REPORT INFORMATION
  Report Type: 
  Country: None (occurrence: None)
  Receive Date: 20100712
  Receipt Date: 20100706
  Transmission Date: 20110219
  Serious: Yes (Hospitalization)
  Sender: FDA-Public Use
  Company Number: CH-PFIZER INC-2010084323

PATIENT
  Age: 76 Year
  Sex: Male

DRUGS (5)
  1. CELEBREX [Suspect]
     Dosage: UNK
     Route: 048
     Dates: end: 20100322
  2. INDERAL [Concomitant]
     Dosage: UNK
     Route: 048
  3. ALDACTONE [Concomitant]
     Dosage: UNK
  4. DAFLON 500 [Concomitant]
     Dosage: UNK
  5. DUPHALAC [Concomitant]
     Dosage: UNK
     Route: 048

REACTIONS (1)
  - PEPTIC ULCER [None]
